FAERS Safety Report 5952640-6 (Version None)
Quarter: 2008Q4

REPORT INFORMATION
  Report Type: 
  Country: None (occurrence: None)
  Receive Date: 20081029
  Receipt Date: 20080724
  Transmission Date: 20090506
  Serious: Yes (Other)
  Sender: FDA-Public Use
  Company Number: 175178USA

PATIENT
  Sex: Male

DRUGS (4)
  1. ZOLPIDEM TARTRATE [Suspect]
     Indication: INSOMNIA
     Dosage: AT HS (10 MG, 1 IN 1 D), ORAL; CAN TAKE UP TO 3 PER NIGHT PRN (50 MG, AS REQUIRED)
     Route: 048
     Dates: start: 20080101
  2. TRAZODONE HCL [Concomitant]
  3. BUPROPION HCL [Concomitant]
  4. OLANZAPINE [Concomitant]

REACTIONS (3)
  - CONDUCT DISORDER [None]
  - IMPAIRED DRIVING ABILITY [None]
  - SOMNAMBULISM [None]
